FAERS Safety Report 18221762 (Version 1)
Quarter: 2020Q3

REPORT INFORMATION
  Report Type: Spontaneous
  Country: US (occurrence: US)
  Receive Date: 20200831
  Receipt Date: 20200831
  Transmission Date: 20201103
  Serious: Yes (Hospitalization)
  Sender: FDA-Public Use
  Company Number: None

PATIENT
  Age: 73 Year
  Sex: Male
  Weight: 74.39 kg

DRUGS (1)
  1. WARFARIN (WARFARIN NA (EXELAN) 7.5MG TAB) [Suspect]
     Active Substance: WARFARIN SODIUM
     Indication: ATRIAL FIBRILLATION
     Dates: start: 20121218, end: 20180329

REACTIONS (2)
  - Packed red blood cell transfusion [None]
  - Lower gastrointestinal haemorrhage [None]

NARRATIVE: CASE EVENT DATE: 20180402
